FAERS Safety Report 5522974-8 (Version None)
Quarter: 2007Q4

REPORT INFORMATION
  Report Type: 
  Country: None (occurrence: None)
  Receive Date: 20071121
  Receipt Date: 20071113
  Transmission Date: 20080405
  Serious: Yes (Other)
  Sender: FDA-Public Use
  Company Number: PHFR2007GB03353

PATIENT

DRUGS (2)
  1. TEGRETOL RETARD [Suspect]
     Dosage: 400MG
     Route: 048
  2. VALPROATE SODIUM [Concomitant]

REACTIONS (2)
  - GASTROINTESTINAL TUBE INSERTION [None]
  - SMALL INTESTINAL OBSTRUCTION [None]
